FAERS Safety Report 7121968-9 (Version None)
Quarter: 2010Q4

REPORT INFORMATION
  Report Type: 
  Country: None (occurrence: None)
  Receive Date: 20101124
  Receipt Date: 20101117
  Transmission Date: 20110411
  Serious: Yes (Other)
  Sender: FDA-Public Use
  Company Number: A0795816A

PATIENT
  Sex: Female
  Weight: 92 kg

DRUGS (10)
  1. ELTROMBOPAG [Suspect]
     Indication: THROMBOCYTOPENIA
     Dosage: 25MG PER DAY
     Route: 048
     Dates: start: 20090504
  2. PEG-INTRON [Suspect]
     Dosage: 150MCG WEEKLY
     Route: 058
     Dates: start: 20090504
  3. ELTROMBOPAG [Suspect]
     Dosage: 25MG PER DAY
     Route: 048
     Dates: start: 20090420, end: 20090503
  4. REBETOL [Suspect]
     Route: 048
     Dates: start: 20090504
  5. ALDALIX [Concomitant]
  6. TETRAZEPAM [Concomitant]
  7. ARTOTEC [Concomitant]
  8. BISOPROLOL FUMARATE [Concomitant]
  9. EXFORGE [Concomitant]
  10. COVERSYL [Concomitant]
     Dates: end: 20090406

REACTIONS (1)
  - RETINAL VEIN THROMBOSIS [None]
